FAERS Safety Report 7472976-X (Version None)
Quarter: 2011Q2

REPORT INFORMATION
  Report Type: 
  Country: None (occurrence: None)
  Receive Date: 20110511
  Receipt Date: 20110505
  Transmission Date: 20111010
  Serious: Yes (Life-Threatening, Other)
  Sender: FDA-Public Use
  Company Number: PHHY2010US49117

PATIENT
  Sex: Female

DRUGS (6)
  1. RECLAST [Suspect]
     Dosage: 5 MG, UNK
     Dates: start: 20090609
  2. PAIN KILLERS [Suspect]
  3. SLEEPING PILLS [Suspect]
  4. AMBIEN [Concomitant]
     Indication: PANIC ATTACK
     Dosage: FOUR TIMES A DAY
  5. XANAX [Concomitant]
     Indication: PANIC ATTACK
     Dosage: FOUR TIMES A DAY
  6. TRAMADOL HCL [Suspect]
     Dosage: 50 MG, UNK

REACTIONS (36)
  - FALL [None]
  - BONE DISORDER [None]
  - HYPERHIDROSIS [None]
  - INCORRECT ROUTE OF DRUG ADMINISTRATION [None]
  - PHYSICAL DISABILITY [None]
  - ACTIVITIES OF DAILY LIVING IMPAIRED [None]
  - INFUSION SITE EROSION [None]
  - OBESITY [None]
  - BALANCE DISORDER [None]
  - VISUAL IMPAIRMENT [None]
  - INSOMNIA [None]
  - HYPOKALAEMIA [None]
  - WHEELCHAIR USER [None]
  - DEPRESSION [None]
  - HEADACHE [None]
  - NAUSEA [None]
  - PAIN [None]
  - BACK PAIN [None]
  - PANIC ATTACK [None]
  - HAEMORRHAGE [None]
  - SYNCOPE [None]
  - TOOTH DISORDER [None]
  - PARALYSIS [None]
  - ABASIA [None]
  - MOVEMENT DISORDER [None]
  - IMPAIRED WORK ABILITY [None]
  - INFUSION SITE INFECTION [None]
  - ABDOMINAL DISCOMFORT [None]
  - ASTHENIA [None]
  - FEELING ABNORMAL [None]
  - HYPOKINESIA [None]
  - HEAD INJURY [None]
  - TOOTH LOSS [None]
  - MUSCULOSKELETAL DISCOMFORT [None]
  - TREMOR [None]
  - PAIN IN EXTREMITY [None]
